FAERS Safety Report 19247144 (Version 1)
Quarter: 2021Q2

REPORT INFORMATION
  Report Type: Spontaneous
  Country: AR (occurrence: AR)
  Receive Date: 20210512
  Receipt Date: 20210512
  Transmission Date: 20210717
  Serious: Yes (Other)
  Sender: FDA-Public Use
  Company Number: AR-PFIZER INC-2021485919

PATIENT
  Age: 76 Year
  Sex: Female

DRUGS (1)
  1. IBRANCE [Suspect]
     Active Substance: PALBOCICLIB
     Indication: BREAST CANCER METASTATIC
     Dosage: 100 MG, CYCLIC (DAILY, SCHEME 3X1)
     Dates: start: 20181019

REACTIONS (10)
  - Muscle disorder [Unknown]
  - Oxygen saturation decreased [Unknown]
  - Gait inability [Unknown]
  - Fatigue [Unknown]
  - Asthenia [Unknown]
  - General physical health deterioration [Unknown]
  - Anaemia [Unknown]
  - Hypokinesia [Unknown]
  - Fear of disease [Unknown]
  - Blood potassium abnormal [Unknown]

NARRATIVE: CASE EVENT DATE: 202103
